FAERS Safety Report 5039308-8 (Version None)
Quarter: 2006Q2

REPORT INFORMATION
  Report Type: 
  Country: None (occurrence: None)
  Receive Date: 20060629
  Receipt Date: 20060623
  Transmission Date: 20061013
  Serious: Yes (Other)
  Sender: FDA-Public Use
  Company Number: CH-JNJFOC-20060605270

PATIENT
  Age: 95 Year
  Sex: Female

DRUGS (5)
  1. RISPERDAL [Suspect]
     Route: 048
     Dates: start: 20060407, end: 20060421
  2. RISPERDAL [Suspect]
     Route: 048
     Dates: start: 20060407, end: 20060421
  3. RISPERDAL [Suspect]
     Indication: DELUSIONAL DISORDER, UNSPECIFIED TYPE
     Route: 048
     Dates: start: 20060407, end: 20060421
  4. VITARUBIN [Suspect]
     Indication: ANAEMIA VITAMIN B12 DEFICIENCY
     Route: 058
     Dates: start: 20060412, end: 20060420
  5. LOMIR [Concomitant]
     Indication: ESSENTIAL HYPERTENSION
     Route: 048

REACTIONS (2)
  - PYREXIA [None]
  - TOXIC SKIN ERUPTION [None]
